FAERS Safety Report 11218810 (Version 1)
Quarter: 2015Q2

REPORT INFORMATION
  Report Type: Report from Study
  Country: FR (occurrence: FR)
  Receive Date: 20150625
  Receipt Date: 20150625
  Transmission Date: 20150821
  Serious: Yes (Hospitalization, Other)
  Sender: FDA-Public Use
  Company Number: FR-GLAXOSMITHKLINE-FR2015GSK089682

PATIENT
  Sex: Female

DRUGS (13)
  1. NATISPRAY [Concomitant]
     Active Substance: NITROGLYCERIN
  2. OMEGA-3-ACID ETHYL ESTERS. [Suspect]
     Active Substance: OMEGA-3-ACID ETHYL ESTERS
     Dosage: UNK
     Dates: start: 20070305
  3. KARDEGIC [Concomitant]
     Active Substance: ASPIRIN LYSINE
  4. OMEGA-3-ACID ETHYL ESTERS. [Suspect]
     Active Substance: OMEGA-3-ACID ETHYL ESTERS
     Indication: ISCHAEMIC HEART DISEASE PROPHYLAXIS
     Dosage: UNK
     Dates: start: 20070505
  5. TAHOR [Concomitant]
     Active Substance: ATORVASTATIN CALCIUM
  6. PLAVIX [Concomitant]
     Active Substance: CLOPIDOGREL BISULFATE
  7. OMEGA-3-ACID ETHYL ESTERS. [Suspect]
     Active Substance: OMEGA-3-ACID ETHYL ESTERS
     Dosage: UNK
     Dates: start: 20070926
  8. OMEGA-3-ACID ETHYL ESTERS. [Suspect]
     Active Substance: OMEGA-3-ACID ETHYL ESTERS
     Dosage: UNK
     Dates: start: 20090209
  9. CARDENSIEL [Concomitant]
     Active Substance: BISOPROLOL FUMARATE
  10. COVERSYL [Concomitant]
     Active Substance: PERINDOPRIL
  11. DISCOTRINE [Concomitant]
     Active Substance: NITROGLYCERIN
  12. INEXIUM [Concomitant]
     Active Substance: ESOMEPRAZOLE
  13. OMEGA-3-ACID ETHYL ESTERS. [Suspect]
     Active Substance: OMEGA-3-ACID ETHYL ESTERS
     Dosage: UNK
     Dates: start: 20070804

REACTIONS (1)
  - Cerebrovascular accident [Unknown]

NARRATIVE: CASE EVENT DATE: 20070422
